FAERS Safety Report 6409842-4 (Version None)
Quarter: 2009Q4

REPORT INFORMATION
  Report Type: 
  Country: None (occurrence: None)
  Receive Date: 20091021
  Receipt Date: 20091021
  Transmission Date: 20100525
  Serious: Yes (Death, Hospitalization)
  Sender: FDA-Public Use
  Company Number: None

PATIENT
  Age: 59 Year
  Sex: Male

DRUGS (10)
  1. TIPRANAVIR BOEHR INGEL [Suspect]
     Indication: CEREBRAL HAEMORRHAGE
     Dosage: 500MG BID PO
     Route: 048
     Dates: end: 20090610
  2. BACTRIM [Concomitant]
  3. RITONAVIR [Concomitant]
  4. FLUCONAZOLE [Concomitant]
  5. TRICOR [Concomitant]
  6. EMTRIVA [Concomitant]
  7. EFAVIRENZE [Concomitant]
  8. LIPITOR [Concomitant]
  9. APTIVUS [Concomitant]
  10. ACYCLOVIR [Concomitant]

REACTIONS (3)
  - CEREBRAL HAEMORRHAGE [None]
  - DEPRESSED LEVEL OF CONSCIOUSNESS [None]
  - FALL [None]
